FAERS Safety Report 9562082 (Version 2)
Quarter: 2014Q1

REPORT INFORMATION
  Report Type: Spontaneous
  Country: GB (occurrence: GB)
  Receive Date: 20130927
  Receipt Date: 20140121
  Transmission Date: 20141002
  Serious: Yes (Death, Other)
  Sender: FDA-Public Use
  Company Number: GB-SANOFI-AVENTIS-2013SA093938

PATIENT
  Age: 70 Year
  Sex: Male
  Weight: 80 kg

DRUGS (14)
  1. ENOXAPARIN SODIUM [Suspect]
     Indication: DEEP VEIN THROMBOSIS
     Dosage: 15MG TWICE FOR FIRST 21 DAYS THEN TO BE INCREASED TO 20MG DAILY?CUMULATIVE DOSE: 2160MG
     Route: 058
     Dates: start: 20130715, end: 20130825
  2. ENOXAPARIN SODIUM [Suspect]
     Indication: HIP ARTHROPLASTY
     Dosage: 15MG TWICE FOR FIRST 21 DAYS THEN TO BE INCREASED TO 20MG DAILY?CUMULATIVE DOSE: 2160MG
     Route: 058
     Dates: start: 20130715, end: 20130825
  3. ENOXAPARIN SODIUM [Suspect]
     Indication: DEEP VEIN THROMBOSIS
     Dosage: CUMULATIVE DOSE: 480MG
     Route: 058
     Dates: start: 20130903, end: 20130905
  4. ENOXAPARIN SODIUM [Suspect]
     Indication: HIP ARTHROPLASTY
     Dosage: CUMULATIVE DOSE: 480MG
     Route: 058
     Dates: start: 20130903, end: 20130905
  5. XARELTO [Suspect]
     Indication: DEEP VEIN THROMBOSIS
     Dosage: AT NIGHT
     Route: 065
     Dates: start: 20130905
  6. LEVOTHYROXINE [Concomitant]
  7. OMEPRAZOLE [Concomitant]
  8. DUTASTERIDE [Concomitant]
  9. NATECAL D [Concomitant]
  10. RISEDRONATE SODIUM [Concomitant]
  11. CO-CODAMOL [Concomitant]
  12. THIAMINE [Concomitant]
  13. VITAMIN B [Concomitant]
  14. TAMSULOSIN [Concomitant]

REACTIONS (2)
  - Cardiac arrest [Fatal]
  - Pulmonary embolism [Not Recovered/Not Resolved]
